FAERS Safety Report 6163236-8 (Version None)
Quarter: 2009Q2

REPORT INFORMATION
  Report Type: 
  Country: None (occurrence: None)
  Receive Date: 20090422
  Receipt Date: 20090212
  Transmission Date: 20091009
  Serious: No
  Sender: FDA-Public Use
  Company Number: US-BAYER-200915877NA

PATIENT
  Age: 80 Year
  Sex: Female

DRUGS (2)
  1. MAGNEVIST [Suspect]
     Indication: NUCLEAR MAGNETIC RESONANCE IMAGING
     Dosage: TOTAL DAILY DOSE: 10 ML  UNIT DOSE: 15 ML
     Dates: start: 20090212, end: 20090212
  2. BENADRYL [Concomitant]
     Indication: MULTIPLE ALLERGIES
     Dates: start: 20090211, end: 20090211

REACTIONS (2)
  - OROPHARYNGEAL PAIN [None]
  - URTICARIA [None]
